FAERS Safety Report 25228188 (Version 3)
Quarter: 2025Q2

REPORT INFORMATION
  Report Type: Spontaneous
  Country: US (occurrence: US)
  Receive Date: 20250423
  Receipt Date: 20250513
  Transmission Date: 20250716
  Serious: Yes (Death)
  Sender: ROCHE
  Company Number: US-ROCHE-10000264463

PATIENT
  Sex: Male
  Weight: 116.9 kg

DRUGS (12)
  1. XOLAIR PFS [Suspect]
     Active Substance: OMALIZUMAB
     Indication: Asthma
     Dosage: INJECT 1 SYRINGE WITH ONE 300 MG SYRINGE UNDER THE SKIN (SUBCUTANEOUS INJECTION) EVERY 3 WEEKS
     Route: 058
     Dates: start: 20250205
  2. XOLAIR PFS [Suspect]
     Active Substance: OMALIZUMAB
     Indication: Asthma
     Dosage: INJECT 1 SYRINGE WITH ONE 300 MG SYRINGE UNDER THE SKIN (SUBCUTANEOUS INJECTION) EVERY 3 WEEKS
     Route: 058
  3. FISH OIL [Concomitant]
     Active Substance: FISH OIL
  4. HYALURONIDAS POW BOVINE [Concomitant]
  5. PREDNISONE [Concomitant]
     Active Substance: PREDNISONE
  6. STERILE WATER [Concomitant]
     Active Substance: WATER
  7. VITAMIN B12 [Concomitant]
     Active Substance: CYANOCOBALAMIN
  8. WEGOVY [Concomitant]
     Active Substance: SEMAGLUTIDE
  9. MONTELUKAST [Concomitant]
     Active Substance: MONTELUKAST
  10. ALBUTEROL [Concomitant]
     Active Substance: ALBUTEROL
  11. EPIPEN [Concomitant]
     Active Substance: EPINEPHRINE
  12. XOLAIR [Concomitant]
     Active Substance: OMALIZUMAB

REACTIONS (2)
  - Death [Fatal]
  - Off label use [Unknown]
